FAERS Safety Report 8665392 (Version 3)
Quarter: 2013Q4

REPORT INFORMATION
  Report Type: Spontaneous
  Country: US (occurrence: US)
  Receive Date: 20120716
  Receipt Date: 20131101
  Transmission Date: 20140711
  Serious: No
  Sender: FDA-Public Use
  Company Number: US-009507513-1207USA000370

PATIENT
  Sex: Female

DRUGS (1)
  1. COSOPT [Suspect]
     Dosage: UNK
     Route: 047
     Dates: start: 2009

REACTIONS (3)
  - Intraocular pressure increased [Not Recovered/Not Resolved]
  - Ocular hyperaemia [Not Recovered/Not Resolved]
  - Eye pruritus [Not Recovered/Not Resolved]
